FAERS Safety Report 10069937 (Version 1)
Quarter: 2014Q2

REPORT INFORMATION
  Report Type: Spontaneous
  Country: JP (occurrence: JP)
  Receive Date: 20140410
  Receipt Date: 20140410
  Transmission Date: 20141212
  Serious: Yes (Other)
  Sender: FDA-Public Use
  Company Number: JP-JNJFOC-20140404376

PATIENT
  Age: 74 Year
  Sex: Male

DRUGS (6)
  1. TRAMCET [Suspect]
     Indication: PAIN
     Dosage: 2 DOSES PER DAY
     Route: 048
  2. TRAMCET [Suspect]
     Indication: PAIN
     Dosage: 2 DOSES PER DAY
     Route: 048
  3. PREGABALIN [Concomitant]
     Indication: PAIN
     Route: 048
  4. DULOXETINE HYDROCHLORIDE [Concomitant]
     Indication: PAIN
     Route: 048
  5. RIKKUNSHI-TO [Concomitant]
     Indication: PAIN
     Route: 048
  6. LOXOPROFEN [Concomitant]
     Indication: PRODUCT USED FOR UNKNOWN INDICATION
     Route: 065

REACTIONS (2)
  - Ileus paralytic [Unknown]
  - Inadequate analgesia [Unknown]
